FAERS Safety Report 19484893 (Version 1)
Quarter: 2021Q3

REPORT INFORMATION
  Report Type: Report from Study
  Country: US (occurrence: US)
  Receive Date: 20210702
  Receipt Date: 20210702
  Transmission Date: 20211014
  Serious: Yes (Hospitalization)
  Sender: FDA-Public Use
  Company Number: US-INSMED, INC.-US-INS-20-00842

PATIENT
  Age: 74 Year
  Sex: Female

DRUGS (1)
  1. ARIKAYCE [Suspect]
     Active Substance: AMIKACIN
     Indication: PRODUCT USED FOR UNKNOWN INDICATION
     Dosage: 590 MILLIGRAM, QD
     Route: 055
     Dates: start: 20181030

REACTIONS (8)
  - Therapy interrupted [Unknown]
  - Intentional dose omission [None]
  - Wrong technique in product usage process [Unknown]
  - Hospitalisation [Unknown]
  - Product dose omission issue [Unknown]
  - Haemoptysis [Not Recovered/Not Resolved]
  - Malaise [Unknown]
  - Drug dose omission by device [Unknown]

NARRATIVE: CASE EVENT DATE: 20200515
